FAERS Safety Report 13828301 (Version 1)
Quarter: 2017Q3

REPORT INFORMATION
  Report Type: Spontaneous
  Country: US (occurrence: US)
  Receive Date: 20170803
  Receipt Date: 20170803
  Transmission Date: 20171127
  Serious: No
  Sender: FDA-Public Use
  Company Number: US-PFIZER INC-2017336068

PATIENT
  Sex: Female

DRUGS (2)
  1. XELJANZ XR [Suspect]
     Active Substance: TOFACITINIB CITRATE
     Dosage: UNK
  2. METHOTREXATE SODIUM. [Suspect]
     Active Substance: METHOTREXATE SODIUM
     Dosage: UNK

REACTIONS (24)
  - Dry eye [Unknown]
  - Cartilage injury [Unknown]
  - Nail disorder [Unknown]
  - Increased tendency to bruise [Unknown]
  - Rash [Unknown]
  - Tendon rupture [Unknown]
  - Pain [Unknown]
  - Raynaud^s phenomenon [Unknown]
  - Arthralgia [Unknown]
  - Psoriasis [Unknown]
  - Headache [Unknown]
  - Fatigue [Unknown]
  - Osteoarthritis [Unknown]
  - Myalgia [Unknown]
  - Joint effusion [Unknown]
  - Weight decreased [Unknown]
  - Vision blurred [Unknown]
  - Joint swelling [Unknown]
  - Muscular weakness [Unknown]
  - Hypoaesthesia [Unknown]
  - Hypertension [Unknown]
  - Loss of personal independence in daily activities [Unknown]
  - Dry mouth [Unknown]
  - Peripheral coldness [Unknown]
